FAERS Safety Report 5255508-6 (Version None)
Quarter: 2007Q1

REPORT INFORMATION
  Report Type: 
  Country: None (occurrence: None)
  Receive Date: 20070228
  Receipt Date: 20070219
  Transmission Date: 20070707
  Serious: Yes (Hospitalization)
  Sender: FDA-Public Use
  Company Number: GXKR2007BR01795

PATIENT
  Age: 67 Year
  Sex: Male

DRUGS (4)
  1. LEVODOPA+CARBIDOPA (NGX)(CARBIDOPA, LEVODOPA) UNKNOWN, 250/25MG [Suspect]
     Indication: PARKINSON'S DISEASE
     Dosage: 250/25 MG
  2. PRAMIPEXOLE DIHYDROCHLORIDE [Concomitant]
  3. AMANTADINE HCL [Concomitant]
  4. ENTACAPONE (ENTACAPONE) [Concomitant]

REACTIONS (9)
  - ABNORMAL BEHAVIOUR [None]
  - ANHEDONIA [None]
  - BACK PAIN [None]
  - BLOOD CATECHOLAMINES ABNORMAL [None]
  - DEPRESSION [None]
  - DRUG DEPENDENCE [None]
  - DYSKINESIA [None]
  - DYSPHORIA [None]
  - MOTOR DYSFUNCTION [None]
